FAERS Safety Report 21699636 (Version 1)
Quarter: 2022Q4

REPORT INFORMATION
  Report Type: Report from Study
  Country: DE (occurrence: DE)
  Receive Date: 20221208
  Receipt Date: 20221208
  Transmission Date: 20230113
  Serious: Yes (Hospitalization)
  Sender: FDA-Public Use
  Company Number: DE-JNJFOC-20221203877

PATIENT
  Sex: Female
  Weight: 2.48 kg

DRUGS (6)
  1. SIMPONI [Suspect]
     Active Substance: GOLIMUMAB
     Indication: Product used for unknown indication
     Route: 064
  2. USTEKINUMAB [Suspect]
     Active Substance: USTEKINUMAB
     Indication: Product used for unknown indication
     Route: 064
  3. USTEKINUMAB [Suspect]
     Active Substance: USTEKINUMAB
  4. MESALAMINE [Concomitant]
     Active Substance: MESALAMINE
  5. METHYLDOPA [Concomitant]
     Active Substance: METHYLDOPA
  6. BUDESONIDE [Concomitant]
     Active Substance: BUDESONIDE
     Dates: start: 20220401, end: 20220501

REACTIONS (2)
  - Low birth weight baby [Unknown]
  - Foetal exposure during pregnancy [Recovered/Resolved]
